FAERS Safety Report 17478060 (Version 1)
Quarter: 2020Q1

REPORT INFORMATION
  Report Type: Spontaneous
  Country: US (occurrence: US)
  Receive Date: 20200228
  Receipt Date: 20200228
  Transmission Date: 20200409
  Serious: No
  Sender: FDA-Public Use
  Company Number: US-009507513-2002USA011085

PATIENT

DRUGS (7)
  1. METHOTREXATE. [Concomitant]
     Active Substance: METHOTREXATE
     Dosage: FOR CYCLES 1, 3, AND 5
  2. CYCLOPHOSPHAMIDE. [Concomitant]
     Active Substance: CYCLOPHOSPHAMIDE
     Dosage: 55 MG/KG/DAY ON DAYS 9 AND 10, CYCLICAL (CYCLES 2 AND 4)
     Route: 042
  3. TEMODAR [Suspect]
     Active Substance: TEMOZOLOMIDE
     Indication: CHOROID PLEXUS CARCINOMA
     Dosage: 150 MG/M2/DAY ON DAYS 1?5, CYCLICAL (INDUCTION CYCLES 2 AND 4)
     Route: 048
  4. ETOPOSIDE. [Concomitant]
     Active Substance: ETOPOSIDE
     Dosage: 3 MG/KG/DAY ON DAYS 2 AND 3, CYCLICAL (5 CYCLES)
  5. VINCRISTINE [Concomitant]
     Active Substance: VINCRISTINE
     Dosage: 0.05 MG/KG ON DAYS 1, 8, AND 15 FOR THE FIRST 3 CYCLES
  6. CISPLATIN. [Concomitant]
     Active Substance: CISPLATIN
     Dosage: 3.5 MG/KG ON DAY 1, CYCLICAL (FOR 5 CYCLES)
  7. ETOPOSIDE. [Concomitant]
     Active Substance: ETOPOSIDE
     Dosage: 50 MG/M2/DAY ON DAYS 1?10, CYCLICAL (CYCLES 2 AND 4)
     Route: 048

REACTIONS (1)
  - Off label use [Unknown]
